FAERS Safety Report 5238308-2 (Version None)
Quarter: 2007Q1

REPORT INFORMATION
  Report Type: 
  Country: None (occurrence: None)
  Receive Date: 20070209
  Receipt Date: 20070209
  Transmission Date: 20070707
  Serious: Yes (Hospitalization)
  Sender: FDA-Public Use
  Company Number: None

PATIENT
  Sex: Female

DRUGS (4)
  1. THALIDOMIDE [Suspect]
     Dosage: 100MG QD PO
     Route: 048
  2. FRAGMIN [Concomitant]
  3. DECADRON [Concomitant]
  4. ATARAX [Concomitant]

REACTIONS (1)
  - CONVULSION [None]
